FAERS Safety Report 18516598 (Version 1)
Quarter: 2020Q4

REPORT INFORMATION
  Report Type: Spontaneous
  Country: US (occurrence: US)
  Receive Date: 20201117
  Receipt Date: 20201117
  Transmission Date: 20210114
  Serious: Yes (Death)
  Sender: FDA-Public Use
  Company Number: None

PATIENT
  Age: 60 Year
  Sex: Male

DRUGS (2)
  1. FULPHILA [Suspect]
     Active Substance: PEGFILGRASTIM-JMDB
     Dosage: ?          OTHER FREQUENCY:EVERY 21 DAYS;?
     Route: 058
  2. ARANESP [Suspect]
     Active Substance: DARBEPOETIN ALFA
     Indication: AGRANULOCYTOSIS
     Dosage: ?          OTHER STRENGTH:200 UGM;OTHER DOSE:200 UGM;?
     Route: 058
     Dates: start: 20200812

REACTIONS (1)
  - Death [None]
